FAERS Safety Report 23731734 (Version 1)
Quarter: 2024Q2

REPORT INFORMATION
  Report Type: Spontaneous
  Country: US (occurrence: US)
  Receive Date: 20240411
  Receipt Date: 20240411
  Transmission Date: 20240716
  Serious: No
  Sender: FDA-Public Use
  Company Number: US-VERTEX PHARMACEUTICALS-2024-005993

PATIENT

DRUGS (1)
  1. TRIKAFTA [Suspect]
     Active Substance: ELEXACAFTOR\IVACAFTOR\TEZACAFTOR
     Indication: Cystic fibrosis
     Dosage: FULL DOSE
     Route: 048

REACTIONS (6)
  - Anxiety [Unknown]
  - Mood swings [Unknown]
  - Hot flush [Unknown]
  - Brain fog [Unknown]
  - Pulmonary function test decreased [Not Recovered/Not Resolved]
  - Mental disorder [Unknown]
